FAERS Safety Report 5928693-8 (Version None)
Quarter: 2008Q4

REPORT INFORMATION
  Report Type: 
  Country: None (occurrence: None)
  Receive Date: 20081023
  Receipt Date: 20081015
  Transmission Date: 20090506
  Serious: Yes (Hospitalization)
  Sender: FDA-Public Use
  Company Number: JP-AMGEN-US293440

PATIENT
  Sex: Female
  Weight: 50 kg

DRUGS (12)
  1. ENBREL [Suspect]
     Indication: RHEUMATOID ARTHRITIS
     Route: 058
     Dates: start: 20051110, end: 20080605
  2. LOXONIN [Concomitant]
     Indication: RHEUMATOID ARTHRITIS
     Route: 048
     Dates: end: 20060124
  3. RHEUMATREX [Concomitant]
     Indication: RHEUMATOID ARTHRITIS
     Route: 048
     Dates: end: 20060606
  4. RHEUMATREX [Concomitant]
     Route: 048
     Dates: start: 20060607, end: 20070306
  5. RHEUMATREX [Concomitant]
     Route: 048
     Dates: start: 20070307
  6. METHOTREXATE [Concomitant]
     Indication: RHEUMATOID ARTHRITIS
     Route: 048
     Dates: end: 20051227
  7. METHOTREXATE [Concomitant]
     Route: 048
     Dates: start: 20051228, end: 20060221
  8. METHOTREXATE [Concomitant]
     Route: 048
     Dates: start: 20030101, end: 20040301
  9. METHOTREXATE [Concomitant]
     Route: 048
     Dates: start: 20040301, end: 20040601
  10. METHOTREXATE [Concomitant]
     Route: 048
     Dates: start: 20040601, end: 20041101
  11. METHOTREXATE [Concomitant]
     Route: 048
     Dates: start: 20041101
  12. ORCL [Concomitant]
     Indication: RHEUMATOID ARTHRITIS
     Route: 048
     Dates: start: 20050202, end: 20051209

REACTIONS (2)
  - GLOMERULONEPHRITIS [None]
  - INTERSTITIAL LUNG DISEASE [None]
